FAERS Safety Report 8358644-0 (Version None)
Quarter: 2012Q2

REPORT INFORMATION
  Report Type: 
  Country: None (occurrence: None)
  Receive Date: 20120514
  Receipt Date: 20111220
  Transmission Date: 20120825
  Serious: Yes (Hospitalization, Other)
  Sender: FDA-Public Use
  Company Number: CN-ROCHE-1012518

PATIENT
  Age: 45 Year
  Sex: Male
  Weight: 65 kg

DRUGS (14)
  1. CYCLOPHOSPHAMIDE [Concomitant]
     Indication: DIFFUSE LARGE B-CELL LYMPHOMA
     Route: 041
     Dates: start: 20110426
  2. VITAMIN B16 [Concomitant]
  3. CISPLATIN [Concomitant]
     Indication: DIFFUSE LARGE B-CELL LYMPHOMA
  4. MABTHERA [Suspect]
     Indication: DIFFUSE LARGE B-CELL LYMPHOMA
     Route: 041
     Dates: start: 20110305
  5. UBENIMEX [Suspect]
     Indication: IMMUNE ENHANCEMENT THERAPY
     Route: 048
     Dates: start: 20111108
  6. DOXORUBICIN HCL [Concomitant]
     Indication: DIFFUSE LARGE B-CELL LYMPHOMA
     Route: 041
     Dates: start: 20110426
  7. VINCRISTINE [Concomitant]
     Indication: DIFFUSE LARGE B-CELL LYMPHOMA
     Route: 041
     Dates: start: 20110426
  8. DEXAMETHASONE [Concomitant]
     Indication: DIFFUSE LARGE B-CELL LYMPHOMA
  9. IFOSFAMIDE [Concomitant]
     Indication: DIFFUSE LARGE B-CELL LYMPHOMA
  10. PREDNISONE [Concomitant]
     Indication: DIFFUSE LARGE B-CELL LYMPHOMA
     Route: 041
     Dates: start: 20110426
  11. MABTHERA [Suspect]
     Route: 041
  12. ORNITHINE ASPARTATE [Suspect]
     Indication: PROPHYLAXIS
     Route: 048
     Dates: start: 20111108
  13. GLUTATHIONE [Suspect]
     Indication: PROPHYLAXIS
     Route: 048
     Dates: start: 20111108
  14. ETOPOSIDE [Concomitant]
     Indication: DIFFUSE LARGE B-CELL LYMPHOMA

REACTIONS (7)
  - DRUG HYPERSENSITIVITY [None]
  - TRANSAMINASES INCREASED [None]
  - VOMITING [None]
  - NEOPLASM PROGRESSION [None]
  - DISEASE PROGRESSION [None]
  - DISEASE RECURRENCE [None]
  - DRUG INEFFECTIVE [None]
